FAERS Safety Report 18386894 (Version 2)
Quarter: 2020Q4

REPORT INFORMATION
  Report Type: Spontaneous
  Country: US (occurrence: US)
  Receive Date: 20201015
  Receipt Date: 20201111
  Transmission Date: 20210114
  Serious: No
  Sender: FDA-Public Use
  Company Number: US-PFIZER INC-2020394928

PATIENT
  Age: 72 Year
  Sex: Male
  Weight: 97.52 kg

DRUGS (2)
  1. ALPRAZOLAM. [Suspect]
     Active Substance: ALPRAZOLAM
     Indication: COMPLEX REGIONAL PAIN SYNDROME
     Dosage: 0.5 MG, 3X/DAY
  2. ALPRAZOLAM. [Suspect]
     Active Substance: ALPRAZOLAM
     Indication: INSOMNIA
     Dosage: 0.5 MG, 1X/DAY (AT NIGHT, ABOUT AN HOUR OR TWO BEFORE BEDTIME)

REACTIONS (4)
  - Product use in unapproved indication [Unknown]
  - Constipation [Unknown]
  - Therapeutic product effect incomplete [Unknown]
  - Off label use [Unknown]
